FAERS Safety Report 4582516-0 (Version None)
Quarter: 2005Q1

REPORT INFORMATION
  Report Type: 
  Country: None (occurrence: None)
  Receive Date: 20050211
  Receipt Date: 20050211
  Transmission Date: 20050727
  Serious: Yes (Other)
  Sender: FDA-Public Use
  Company Number: None

PATIENT
  Age: 59 Year
  Sex: Female
  Weight: 108.8633 kg

DRUGS (1)
  1. LIDOCAINE AND EPINEPHRINE [Suspect]
     Indication: CHALAZION
     Dosage: 2% LIDOCAINE WITH EPI 100,000 UNITS

REACTIONS (3)
  - EYELID PTOSIS [None]
  - PHARMACEUTICAL PRODUCT COMPLAINT [None]
  - POST PROCEDURAL COMPLICATION [None]
